FAERS Safety Report 24460366 (Version 1)
Quarter: 2024Q4

REPORT INFORMATION
  Report Type: Report from Study
  Country: CN (occurrence: CN)
  Receive Date: 20241018
  Receipt Date: 20241018
  Transmission Date: 20250115
  Serious: No
  Sender: ROCHE
  Company Number: CN-ROCHE-3558012

PATIENT

DRUGS (4)
  1. RITUXIMAB [Suspect]
     Active Substance: RITUXIMAB
     Indication: Glomerulonephritis membranous
     Dosage: 375 MG/M2 IVS DRIP ONCE A WEEK FOR 4 TIMES, OR 1 G/2 WEEKS FOR 2 TIMES?LOW DOSE- RTX 100 MG/WEEK FOR
     Route: 041
  2. CYCLOPHOSPHAMIDE [Suspect]
     Active Substance: CYCLOPHOSPHAMIDE
     Indication: Glomerulonephritis membranous
     Route: 065
  3. CYCLOSPORINE [Suspect]
     Active Substance: CYCLOSPORINE
     Indication: Glomerulonephritis membranous
     Route: 065
  4. TACROLIMUS [Suspect]
     Active Substance: TACROLIMUS
     Indication: Glomerulonephritis membranous
     Route: 065

REACTIONS (6)
  - Chills [Recovering/Resolving]
  - Chest discomfort [Recovering/Resolving]
  - Rash erythematous [Recovering/Resolving]
  - Hepatic function abnormal [Recovered/Resolved]
  - Off label use [Unknown]
  - Pneumonia [Unknown]
